FAERS Safety Report 6302803-5 (Version None)
Quarter: 2009Q3

REPORT INFORMATION
  Report Type: 
  Country: None (occurrence: None)
  Receive Date: 20090810
  Receipt Date: 20090622
  Transmission Date: 20100115
  Serious: No
  Sender: FDA-Public Use
  Company Number: A0794374A

PATIENT
  Sex: Male

DRUGS (2)
  1. ALTABAX [Suspect]
     Indication: BLISTER
     Route: 065
  2. CLINDAMYCIN [Concomitant]
     Indication: BLISTER
     Dosage: 300MG UNKNOWN
     Route: 065

REACTIONS (1)
  - THERMAL BURN [None]
